FAERS Safety Report 15567219 (Version 3)
Quarter: 2019Q2

REPORT INFORMATION
  Report Type: Report from Study
  Country: US (occurrence: US)
  Receive Date: 20181030
  Receipt Date: 20190430
  Transmission Date: 20190711
  Serious: Yes (Hospitalization)
  Sender: FDA-Public Use
  Company Number: US-TAIHO ONCOLOGY  INC-EU-2018-01877

PATIENT
  Age: 81 Year
  Sex: Male
  Weight: 69.92 kg

DRUGS (4)
  1. SYNTHROID [Concomitant]
     Active Substance: LEVOTHYROXINE SODIUM
     Indication: HYPOTHYROIDISM
  2. HCTZ [Concomitant]
     Active Substance: HYDROCHLOROTHIAZIDE
  3. LONSURF [Suspect]
     Active Substance: TIPIRACIL HYDROCHLORIDE\TRIFLURIDINE
     Indication: COLON CANCER METASTATIC
     Dosage: CYCLE 1 FINISHED ON 19/OCT/2018
     Route: 048
     Dates: start: 20181008
  4. LONSURF [Suspect]
     Active Substance: TIPIRACIL HYDROCHLORIDE\TRIFLURIDINE
     Dosage: CYCLE 2 AT UNSPECIFIED REDUCED DOSE
     Route: 048
     Dates: start: 20181119, end: 20181130

REACTIONS (6)
  - Disease progression [Unknown]
  - Neutropenia [Unknown]
  - Pyrexia [Not Recovered/Not Resolved]
  - Abdominal pain upper [Unknown]
  - White blood cell count decreased [Recovered/Resolved]
  - Colitis [Not Recovered/Not Resolved]

NARRATIVE: CASE EVENT DATE: 20180528
